FAERS Safety Report 7621406-3 (Version None)
Quarter: 2011Q3

REPORT INFORMATION
  Report Type: 
  Country: None (occurrence: None)
  Receive Date: 20110719
  Receipt Date: 20110713
  Transmission Date: 20111222
  Serious: Yes (Death)
  Sender: FDA-Public Use
  Company Number: CA-CELGENEUS-028-21880-11071316

PATIENT
  Sex: Female

DRUGS (15)
  1. ISOSORBIDE MONONITRATE [Concomitant]
     Dosage: 66 MILLIGRAM
     Route: 065
  2. PANTOPRAZOLE SODIUM [Concomitant]
     Route: 065
  3. SENNOSIDES [Concomitant]
     Route: 065
  4. REVLIMID [Suspect]
     Indication: MULTIPLE MYELOMA
     Dosage: 15 MILLIGRAM
     Route: 048
     Dates: start: 20110422, end: 20110601
  5. ASAPHEN [Concomitant]
     Route: 065
  6. EPREX [Concomitant]
     Route: 065
  7. CITALOPRAM HYDROBROMIDE [Concomitant]
     Route: 065
  8. CLONAZEPAM [Concomitant]
     Route: 065
  9. WARFARIN SODIUM [Concomitant]
     Route: 065
  10. SYNTHROID [Concomitant]
     Route: 065
  11. METFORMIN HCL [Concomitant]
     Route: 065
  12. METOPROLOL TARTRATE [Concomitant]
     Route: 065
  13. DEXAMETHASONE [Concomitant]
     Route: 065
  14. NORGESIC [Concomitant]
     Route: 065
  15. VITAMIN B-12 [Concomitant]
     Route: 048

REACTIONS (1)
  - DEATH [None]
